FAERS Safety Report 4472853-2 (Version None)
Quarter: 2004Q4

REPORT INFORMATION
  Report Type: 
  Country: None (occurrence: None)
  Receive Date: 20041008
  Receipt Date: 20040924
  Transmission Date: 20050328
  Serious: No
  Sender: FDA-Public Use
  Company Number: 2004UW20198

PATIENT
  Age: 34 Year
  Sex: Female

DRUGS (2)
  1. SEROQUEL [Suspect]
     Dosage: 25 MG DIALY PO
     Route: 048
  2. GABAPENTIN [Suspect]
     Dosage: 300 MG DAILY

REACTIONS (2)
  - DYSPHEMIA [None]
  - SPEECH DISORDER [None]
